FAERS Safety Report 19259136 (Version 1)
Quarter: 2021Q2

REPORT INFORMATION
  Report Type: Spontaneous
  Country: FR (occurrence: FR)
  Receive Date: 20210514
  Receipt Date: 20210514
  Transmission Date: 20210717
  Serious: Yes (Hospitalization, Other)
  Sender: FDA-Public Use
  Company Number: FR-ADVANZ PHARMA-202104003235

PATIENT

DRUGS (3)
  1. NIVAQUINE [Suspect]
     Active Substance: CHLOROQUINE
     Indication: SJOGREN^S SYNDROME
     Dosage: UNK
     Route: 048
  2. NIVAQUINE [Suspect]
     Active Substance: CHLOROQUINE
     Indication: SYSTEMIC LUPUS ERYTHEMATOSUS
  3. HYDROXYCHLOROQUINE [Suspect]
     Active Substance: HYDROXYCHLOROQUINE
     Indication: PRODUCT USED FOR UNKNOWN INDICATION
     Dosage: UNK, PLAQUENIL
     Route: 065
     Dates: start: 2017, end: 2017

REACTIONS (12)
  - Retinal injury [Unknown]
  - Muscle spasms [Unknown]
  - Abdominal pain [Unknown]
  - Rash [Unknown]
  - Drug intolerance [Unknown]
  - Diarrhoea [Unknown]
  - Alopecia [Unknown]
  - Drug hypersensitivity [Unknown]
  - Constipation [Unknown]
  - Visual field defect [Unknown]
  - Nausea [Unknown]
  - Vomiting [Unknown]
